APPROVED DRUG PRODUCT: CAPITAL AND CODEINE
Active Ingredient: ACETAMINOPHEN; CODEINE PHOSPHATE
Strength: 120MG/5ML;12MG/5ML
Dosage Form/Route: SUSPENSION;ORAL
Application: A085883 | Product #001
Applicant: ACTAVIS MID ATLANTIC LLC
Approved: Approved Prior to Jan 1, 1982 | RLD: No | RS: No | Type: DISCN